FAERS Safety Report 4923323-6 (Version None)
Quarter: 2006Q1

REPORT INFORMATION
  Report Type: 
  Country: None (occurrence: None)
  Receive Date: 20060227
  Receipt Date: 20060216
  Transmission Date: 20060701
  Serious: Yes (Hospitalization)
  Sender: FDA-Public Use
  Company Number: FR-JNJFOC-20060204281

PATIENT
  Age: 79 Year
  Sex: Female

DRUGS (10)
  1. REMICADE [Suspect]
     Indication: RHEUMATOID ARTHRITIS
     Dosage: 17 INFUSIONS, LAST INFUSION ON 18-NOV-05
     Route: 042
  2. OMEPRAZOLE [Concomitant]
  3. ACTONEL [Concomitant]
  4. AMLOR [Concomitant]
  5. DETENSIEL [Concomitant]
  6. CLONAZEPAM [Concomitant]
  7. OROCAL D3 [Concomitant]
  8. OROCAL D3 [Concomitant]
  9. IMUREL [Concomitant]
  10. CORTANCYL [Concomitant]

REACTIONS (3)
  - BLOOD TRIGLYCERIDES INCREASED [None]
  - ENDOPHTHALMITIS [None]
  - IMMUNOGLOBULINS INCREASED [None]
